FAERS Safety Report 15699750 (Version 1)
Quarter: 2018Q4

REPORT INFORMATION
  Report Type: Spontaneous
  Country: CA (occurrence: CA)
  Receive Date: 20181207
  Receipt Date: 20181207
  Transmission Date: 20190205
  Serious: Yes (Other)
  Sender: FDA-Public Use
  Company Number: CA-PFIZER INC-2018501660

PATIENT
  Age: 91 Year
  Sex: Female

DRUGS (7)
  1. CIMZIA [Concomitant]
     Active Substance: CERTOLIZUMAB PEGOL
     Dosage: UNK
     Dates: start: 2010
  2. METHOTREXATE SODIUM. [Suspect]
     Active Substance: METHOTREXATE SODIUM
     Indication: RHEUMATOID ARTHRITIS
     Dosage: 15 MG, WEEKLY
     Route: 048
     Dates: start: 2010, end: 2018
  3. PREDNISONE. [Concomitant]
     Active Substance: PREDNISONE
     Dosage: 5 MG, DAILY (DECREASED BY 1 MG EVERY 2 WEEKS)
     Dates: start: 201709
  4. ARAVA [Concomitant]
     Active Substance: LEFLUNOMIDE
     Dosage: UNK
     Dates: start: 2010
  5. PREDNISONE. [Concomitant]
     Active Substance: PREDNISONE
     Dosage: 5 MG, DAILY (DECREASED BY 1 MG EVERY 2 WEEKS)
     Dates: start: 2010, end: 2014
  6. XELJANZ [Concomitant]
     Active Substance: TOFACITINIB CITRATE
     Dosage: 5 MG, 1X/DAY
     Route: 048
     Dates: start: 2018
  7. XELJANZ [Concomitant]
     Active Substance: TOFACITINIB CITRATE
     Indication: RHEUMATOID ARTHRITIS
     Dosage: 5 MG, 2X/DAY
     Route: 048
     Dates: start: 20170314, end: 201801

REACTIONS (11)
  - Osteonecrosis [Unknown]
  - Iritis [Unknown]
  - Mouth ulceration [Unknown]
  - Infection [Unknown]
  - Peripheral sensory neuropathy [Unknown]
  - Femoral neck fracture [Unknown]
  - Spinal column injury [Unknown]
  - Condition aggravated [Unknown]
  - Headache [Recovered/Resolved]
  - Compression fracture [Unknown]
  - Temporal arteritis [Unknown]

NARRATIVE: CASE EVENT DATE: 2014
